FAERS Safety Report 15801492 (Version 1)
Quarter: 2019Q1

REPORT INFORMATION
  Report Type: Spontaneous
  Country: US (occurrence: US)
  Receive Date: 20190104
  Receipt Date: 20190104
  Transmission Date: 20190417
  Serious: Yes (Hospitalization)
  Sender: FDA-Public Use
  Company Number: None

PATIENT
  Age: 58 Year
  Sex: Male

DRUGS (20)
  1. METHOCARBAM [Concomitant]
     Active Substance: METHOCARBAMOL
  2. CYCLOSPORINE MOD 25MG CAPS [Suspect]
     Active Substance: CYCLOSPORINE
     Indication: RENAL TRANSPLANT
     Route: 048
     Dates: start: 201606
  3. FOLIC ACID 1MG TABLET [Concomitant]
     Active Substance: FOLIC ACID
     Indication: RENAL TRANSPLANT
     Dates: start: 201606
  4. AMLODIPINE [Concomitant]
     Active Substance: AMLODIPINE BESYLATE
  5. FLUVASTATIN [Concomitant]
     Active Substance: FLUVASTATIN SODIUM
  6. FOLIC ACID. [Concomitant]
     Active Substance: FOLIC ACID
  7. ULORIC [Concomitant]
     Active Substance: FEBUXOSTAT
  8. SENSIPAR [Suspect]
     Active Substance: CINACALCET HYDROCHLORIDE
     Indication: RENAL TRANSPLANT
     Route: 048
     Dates: start: 201606
  9. MYCOPHENOLATE 500MG TAB [Suspect]
     Active Substance: MYCOPHENOLIC ACID
     Indication: RENAL TRANSPLANT
     Route: 048
     Dates: start: 201606
  10. CYCLOSPORINE MODIFIED [Suspect]
     Active Substance: CYCLOSPORINE
  11. CYCLOSPORINE MOD 25MG CAPS [Suspect]
     Active Substance: CYCLOSPORINE
     Indication: RENAL TRANSPLANT
     Route: 048
     Dates: start: 201606
  12. CALCITRIOL. [Concomitant]
     Active Substance: CALCITRIOL
  13. VITAMIN B6 [Concomitant]
     Active Substance: PYRIDOXINE HYDROCHLORIDE
  14. CYCLOSPORINE MODIFIED [Suspect]
     Active Substance: CYCLOSPORINE
     Indication: RENAL TRANSPLANT
     Route: 048
     Dates: start: 201606
  15. DULOXETINE. [Concomitant]
     Active Substance: DULOXETINE
  16. CYCLOSPORINE MOD 25 CAP [Suspect]
     Active Substance: CYCLOSPORINE
  17. HYDROCO/APAP [Concomitant]
     Active Substance: ACETAMINOPHEN\HYDROCODONE
  18. FENOFIBRIC [Concomitant]
     Active Substance: FENOFIBRIC ACID
  19. DULOXETINE. [Concomitant]
     Active Substance: DULOXETINE
  20. VASCEPA [Concomitant]
     Active Substance: ICOSAPENT ETHYL

REACTIONS (1)
  - Back disorder [None]
